FAERS Safety Report 17372206 (Version 1)
Quarter: 2020Q1

REPORT INFORMATION
  Report Type: Other
  Country: US (occurrence: US)
  Receive Date: 20200205
  Receipt Date: 20200205
  Transmission Date: 20200409
  Serious: No
  Sender: FDA-Public Use
  Company Number: US-AMAG PHARMACEUTICALS, INC.-AMAG201900804

PATIENT
  Sex: Female

DRUGS (1)
  1. MAKENA [Suspect]
     Active Substance: HYDROXYPROGESTERONE CAPROATE
     Indication: PREMATURE DELIVERY
     Dosage: UNK
     Route: 058

REACTIONS (5)
  - Injection site pruritus [Unknown]
  - Injection site discomfort [Unknown]
  - Injection site bruising [Unknown]
  - Product administration error [Unknown]
  - Product administered at inappropriate site [Unknown]
